FAERS Safety Report 16711663 (Version 1)
Quarter: 2019Q3

REPORT INFORMATION
  Report Type: Spontaneous
  Country: IT (occurrence: IT)
  Receive Date: 20190816
  Receipt Date: 20190816
  Transmission Date: 20191004
  Serious: Yes (Other)
  Sender: FDA-Public Use
  Company Number: IT-SA-2019SA223272

PATIENT
  Age: 69 Year
  Sex: Female

DRUGS (1)
  1. FOILLE INSETTI [Suspect]
     Active Substance: HYDROCORTISONE
     Indication: ARTHROPOD STING
     Dosage: 1 DF, QD
     Route: 003
     Dates: start: 20190803, end: 20190803

REACTIONS (1)
  - Hypersensitivity [Unknown]

NARRATIVE: CASE EVENT DATE: 20190803
